FAERS Safety Report 9156293 (Version 1)
Quarter: 2013Q1

REPORT INFORMATION
  Report Type: Other
  Country: US (occurrence: US)
  Receive Date: 20130118
  Receipt Date: 20130118
  Transmission Date: 20140127
  Serious: Yes (Hospitalization)
  Sender: FDA-Public Use
  Company Number: US-RB-048671-13

PATIENT
  Sex: 0

DRUGS (1)
  1. BUPRENORPHINE [Suspect]
     Indication: PRODUCT USED FOR UNKNOWN INDICATION
     Dosage: BUPRENORPHINE UNSPECIFIED; DOSING DETAILS UNKNOWN
     Route: 065

REACTIONS (2)
  - Off label use [Unknown]
  - Hospitalisation [Unknown]
